FAERS Safety Report 17591311 (Version 4)
Quarter: 2021Q1

REPORT INFORMATION
  Report Type: Spontaneous
  Country: CA (occurrence: CA)
  Receive Date: 20200327
  Receipt Date: 20210322
  Transmission Date: 20210419
  Serious: Yes (Hospitalization, Other)
  Sender: FDA-Public Use
  Company Number: CA-PFIZER INC-2019188023

PATIENT
  Age: 47 Year
  Sex: Female

DRUGS (4)
  1. XELJANZ [Suspect]
     Active Substance: TOFACITINIB CITRATE
     Dosage: 5 MG, 2X/DAY
     Route: 048
     Dates: start: 20200325
  2. XELJANZ [Suspect]
     Active Substance: TOFACITINIB CITRATE
     Dosage: 15 MG, DAILY (2X5 MG AM AND 5 MG PM FOR 1 MONTH)
     Route: 048
     Dates: start: 20200209, end: 202003
  3. PREDNISONE. [Concomitant]
     Active Substance: PREDNISONE
     Dosage: 15 MG, DAILY
     Route: 048
  4. XELJANZ [Suspect]
     Active Substance: TOFACITINIB CITRATE
     Indication: COLITIS ULCERATIVE
     Dosage: 10 MG, 2X/DAY
     Route: 048
     Dates: start: 20190325, end: 20200209

REACTIONS (7)
  - Off label use [Unknown]
  - Condition aggravated [Unknown]
  - Septic shock [Unknown]
  - Therapeutic product effect incomplete [Unknown]
  - Urinary tract infection [Recovered/Resolved]
  - Nephrolithiasis [Unknown]
  - Kidney infection [Not Recovered/Not Resolved]

NARRATIVE: CASE EVENT DATE: 20190923
